FAERS Safety Report 9804347 (Version 1)
Quarter: 2014Q1

REPORT INFORMATION
  Report Type: Spontaneous
  Country: IT (occurrence: IT)
  Receive Date: 20140108
  Receipt Date: 20140108
  Transmission Date: 20141002
  Serious: Yes (Other)
  Sender: FDA-Public Use
  Company Number: IT-TEVA-454202ISR

PATIENT
  Age: 75 Year
  Sex: Male

DRUGS (3)
  1. BICALUTAMIDE TEVA 150 MG [Suspect]
     Indication: PROSTATE CANCER
     Dosage: 150 MILLIGRAM DAILY;
     Route: 048
     Dates: start: 20131125, end: 20131215
  2. PERINDOPRIL [Concomitant]
     Dosage: 4 MILLIGRAM DAILY;
     Route: 048
  3. XATRAL 10 MG [Concomitant]
     Dosage: 1 DOSAGE FORMS DAILY;
     Route: 048

REACTIONS (3)
  - Dermatitis bullous [Recovered/Resolved]
  - Pruritus [Recovered/Resolved]
  - Abdominal pain [Recovered/Resolved]
